FAERS Safety Report 9271407 (Version 1)
Quarter: 2013Q2

REPORT INFORMATION
  Report Type: Spontaneous
  Country: US (occurrence: US)
  Receive Date: 20130506
  Receipt Date: 20130506
  Transmission Date: 20140414
  Serious: No
  Sender: FDA-Public Use
  Company Number: US-PFIZER INC-2013136270

PATIENT
  Age: 54 Year
  Sex: Female

DRUGS (2)
  1. LIPITOR [Suspect]
     Dosage: 40 MG, UNK
  2. NEURONTIN [Suspect]
     Dosage: 60 MG, UNK

REACTIONS (1)
  - Neuralgia [Unknown]
